FAERS Safety Report 13435995 (Version 2)
Quarter: 2017Q2

REPORT INFORMATION
  Report Type: Report from Study
  Country: US (occurrence: US)
  Receive Date: 20170413
  Receipt Date: 20170428
  Transmission Date: 20170830
  Serious: Yes (Hospitalization)
  Sender: FDA-Public Use
  Company Number: US-JNJFOC-20170334604

PATIENT
  Sex: Female

DRUGS (7)
  1. IMBRUVICA [Suspect]
     Active Substance: IBRUTINIB
     Indication: WALDENSTROM^S MACROGLOBULINAEMIA
     Route: 048
     Dates: start: 20170127, end: 2017
  2. LUMIGAN [Concomitant]
     Active Substance: BIMATOPROST
  3. CALCIUM [Concomitant]
     Active Substance: CALCIUM
  4. LATANOPROST. [Concomitant]
     Active Substance: LATANOPROST
  5. IMBRUVICA [Suspect]
     Active Substance: IBRUTINIB
     Indication: WALDENSTROM^S MACROGLOBULINAEMIA
     Route: 048
     Dates: start: 20170128, end: 2017
  6. DORZOLAMIDE [Concomitant]
     Active Substance: DORZOLAMIDE
  7. ALENDRONATE [Concomitant]
     Active Substance: ALENDRONATE SODIUM

REACTIONS (6)
  - Faeces discoloured [Unknown]
  - Nausea [Unknown]
  - Asthenia [Unknown]
  - Chills [Recovering/Resolving]
  - Liver injury [Unknown]
  - Chromaturia [Unknown]

NARRATIVE: CASE EVENT DATE: 2017
